FAERS Safety Report 21812813 (Version 1)
Quarter: 2023Q1

REPORT INFORMATION
  Report Type: Spontaneous
  Country: US (occurrence: None)
  Receive Date: 20230101
  Receipt Date: 20230101
  Transmission Date: 20230417
  Serious: Yes (Disabling)
  Sender: FDA-Public Use
  Company Number: None

PATIENT
  Age: 52 Year
  Sex: Female
  Weight: 58.5 kg

DRUGS (1)
  1. LEVOFLOXACIN [Suspect]
     Active Substance: LEVOFLOXACIN
     Indication: Sinusitis
     Dosage: FREQUENCY : DAILY;?
     Route: 048
     Dates: end: 20220919

REACTIONS (6)
  - Myopathy [None]
  - Neuropathy peripheral [None]
  - Blood creatine phosphokinase increased [None]
  - Exercise tolerance decreased [None]
  - Tendon pain [None]
  - Oedema peripheral [None]

NARRATIVE: CASE EVENT DATE: 20210920
